FAERS Safety Report 15575487 (Version 3)
Quarter: 2018Q4

REPORT INFORMATION
  Report Type: Report from Study
  Country: NL (occurrence: NL)
  Receive Date: 20181101
  Receipt Date: 20181114
  Transmission Date: 20190205
  Serious: Yes (Hospitalization)
  Sender: FDA-Public Use
  Company Number: NL-SA-2018SA011437

PATIENT
  Age: 35 Year
  Sex: Female

DRUGS (1)
  1. ALEMTUZUMAB [Suspect]
     Active Substance: ALEMTUZUMAB
     Indication: MULTIPLE SCLEROSIS RELAPSE
     Dosage: 12 MG,QD
     Route: 041
     Dates: start: 20170904, end: 20170908

REACTIONS (18)
  - Dizziness [Recovering/Resolving]
  - Folate deficiency [Recovering/Resolving]
  - Constipation [Recovering/Resolving]
  - Urinary tract infection [Recovered/Resolved]
  - Dysgeusia [Recovered/Resolved]
  - Pyrexia [Recovered/Resolved]
  - Fatigue [Recovering/Resolving]
  - Headache [Recovering/Resolving]
  - Increased appetite [Recovered/Resolved]
  - Oedema [Recovering/Resolving]
  - Dyspnoea [Recovered/Resolved]
  - Nausea [Recovered/Resolved]
  - Anaemia [Recovering/Resolving]
  - Pallor [Recovered/Resolved]
  - Hyperhidrosis [Recovered/Resolved]
  - Palpitations [Recovering/Resolving]
  - Rash [Recovered/Resolved]
  - Sinusitis [Recovered/Resolved]

NARRATIVE: CASE EVENT DATE: 201709
